FAERS Safety Report 7576177-6 (Version None)
Quarter: 2011Q2

REPORT INFORMATION
  Report Type: 
  Country: None (occurrence: None)
  Receive Date: 20110623
  Receipt Date: 20110623
  Transmission Date: 20111010
  Serious: Yes (Hospitalization)
  Sender: FDA-Public Use
  Company Number: None

PATIENT
  Sex: Female
  Weight: 63.1 kg

DRUGS (1)
  1. TAXOTERE [Suspect]
     Dosage: 105 MG
     Dates: end: 20110513

REACTIONS (9)
  - SYNCOPE [None]
  - DUODENAL ULCER HAEMORRHAGE [None]
  - PNEUMONIA [None]
  - OEDEMA [None]
  - EJECTION FRACTION DECREASED [None]
  - HAEMOGLOBIN DECREASED [None]
  - TRANSFUSION REACTION [None]
  - DIZZINESS [None]
  - TACHYCARDIA [None]
